FAERS Safety Report 6824709-5 (Version None)
Quarter: 2010Q3

REPORT INFORMATION
  Report Type: 
  Country: None (occurrence: None)
  Receive Date: 20100708
  Receipt Date: 20061115
  Transmission Date: 20110219
  Serious: No
  Sender: FDA-Public Use
  Company Number: US-PFIZER INC-2006142975

PATIENT
  Sex: Female
  Weight: 83.91 kg

DRUGS (9)
  1. CHANTIX [Suspect]
     Indication: SMOKING CESSATION THERAPY
     Route: 048
     Dates: start: 20060101, end: 20060101
  2. PROZAC [Concomitant]
  3. CELEBREX [Concomitant]
  4. PREVACID [Concomitant]
  5. MEDROXYPROGESTERONE ACETATE [Concomitant]
  6. OXYCODONE HCL [Concomitant]
  7. AMITRIPTYLINE [Concomitant]
  8. CARBIDOPA [Concomitant]
  9. BISOPROLOL [Concomitant]

REACTIONS (2)
  - DRUG INEFFECTIVE [None]
  - NO ADVERSE EVENT [None]
